FAERS Safety Report 14871592 (Version 2)
Quarter: 2018Q2

REPORT INFORMATION
  Report Type: Spontaneous
  Country: FR (occurrence: FR)
  Receive Date: 20180509
  Receipt Date: 20180524
  Transmission Date: 20180711
  Serious: Yes (Other)
  Sender: FDA-Public Use
  Company Number: FR-MYLANLABS-2018M1030839

PATIENT
  Sex: Male

DRUGS (2)
  1. SPIRONOLACTONE MYLAN [Suspect]
     Active Substance: SPIRONOLACTONE
  2. FUROSEMIDE MYLAN [Suspect]
     Active Substance: FUROSEMIDE

REACTIONS (1)
  - Loss of consciousness [Unknown]
